FAERS Safety Report 20111821 (Version 2)
Quarter: 2022Q1

REPORT INFORMATION
  Report Type: Spontaneous
  Country: US (occurrence: US)
  Receive Date: 20211125
  Receipt Date: 20220228
  Transmission Date: 20220424
  Serious: Yes (Other)
  Sender: FDA-Public Use
  Company Number: US-BRISTOL-MYERS SQUIBB COMPANY-BMS-2021-126330

PATIENT
  Age: 9 Year
  Sex: Female

DRUGS (5)
  1. ORENCIA [Suspect]
     Active Substance: ABATACEPT
     Indication: Juvenile idiopathic arthritis
     Dosage: 50 MILLIGRAM, QWK
     Route: 058
     Dates: start: 20191015
  2. ORENCIA [Suspect]
     Active Substance: ABATACEPT
     Indication: Juvenile idiopathic arthritis
     Dosage: 50 MILLIGRAM, QWK
     Route: 058
     Dates: start: 20191015
  3. ORENCIA [Suspect]
     Active Substance: ABATACEPT
     Dosage: 87.5 UNK
     Route: 065
  4. ORENCIA [Suspect]
     Active Substance: ABATACEPT
     Dosage: 87.5 UNK
     Route: 065
  5. METHOTREXATE [Concomitant]
     Active Substance: METHOTREXATE
     Indication: Product used for unknown indication
     Dosage: UNK
     Route: 065

REACTIONS (4)
  - Uveitis [Unknown]
  - Drug ineffective [Unknown]
  - Joint swelling [Recovering/Resolving]
  - Arthralgia [Recovering/Resolving]

NARRATIVE: CASE EVENT DATE: 20211001
